FAERS Safety Report 18707566 (Version 2)
Quarter: 2021Q1

REPORT INFORMATION
  Report Type: Not Available
  Country: JP (occurrence: JP)
  Receive Date: 20210106
  Receipt Date: 20210219
  Transmission Date: 20210419
  Serious: Yes (Hospitalization, Disabling, Other)
  Sender: FDA-Public Use
  Company Number: JP-JNJFOC-20210105729

PATIENT
  Age: 80 Year
  Sex: Male

DRUGS (7)
  1. LOXOPROFEN SODIUM HYDRATE [Concomitant]
     Active Substance: LOXOPROFEN SODIUM DIHYDRATE
     Dosage: DOSE UNKNOWN
     Route: 065
     Dates: start: 20200118, end: 20201228
  2. LANSOPRAZOLE OD [Concomitant]
     Active Substance: LANSOPRAZOLE
     Dosage: DOSE UNKNOWN
     Route: 048
     Dates: start: 20200118, end: 20201228
  3. PREDNISOLONE. [Concomitant]
     Active Substance: PREDNISOLONE
     Dosage: DOSE UNKNOWN
     Route: 048
     Dates: start: 20200118, end: 20201228
  4. CALCIUM L?ASPARTATE HYDRATE [Concomitant]
     Active Substance: ASPARTIC ACID
     Dosage: DOSE UNKNOWN
     Route: 048
     Dates: start: 20200118, end: 20201228
  5. ERLEADA [Suspect]
     Active Substance: APALUTAMIDE
     Indication: PROSTATE CANCER
     Route: 048
     Dates: start: 20201026, end: 20201106
  6. MAGNESIUM OXIDE. [Concomitant]
     Active Substance: MAGNESIUM OXIDE
     Dosage: DOSE UNKNOWN
     Route: 065
     Dates: start: 20200118, end: 20201228
  7. ACETAMINOPHEN. [Concomitant]
     Active Substance: ACETAMINOPHEN
     Dosage: DOSE UNKNOWN
     Route: 048
     Dates: start: 20200118, end: 20201228

REACTIONS (2)
  - Dysstasia [Recovering/Resolving]
  - Asthenia [Recovering/Resolving]

NARRATIVE: CASE EVENT DATE: 202011
